FAERS Safety Report 11832330 (Version 1)
Quarter: 2015Q4

REPORT INFORMATION
  Report Type: Spontaneous
  Country: US (occurrence: US)
  Receive Date: 20151214
  Receipt Date: 20151214
  Transmission Date: 20160305
  Serious: No
  Sender: FDA-Public Use
  Company Number: US-AKRON, INC.-1045439

PATIENT
  Age: 83 Year
  Sex: Female
  Weight: 54.55 kg

DRUGS (1)
  1. DORZOLAMIDE HCL [Suspect]
     Active Substance: DORZOLAMIDE HYDROCHLORIDE
     Indication: GLAUCOMA

REACTIONS (6)
  - Throat irritation [Recovering/Resolving]
  - Tinnitus [Recovering/Resolving]
  - Cough [Recovering/Resolving]
  - Eye pain [Recovering/Resolving]
  - Vision blurred [Recovering/Resolving]
  - Fatigue [Recovering/Resolving]
